FAERS Safety Report 6244321-9 (Version None)
Quarter: 2009Q2

REPORT INFORMATION
  Report Type: 
  Country: None (occurrence: None)
  Receive Date: 20090623
  Receipt Date: 20090623
  Transmission Date: 20091009
  Serious: Yes (Hospitalization)
  Sender: FDA-Public Use
  Company Number: None

PATIENT
  Age: 87 Year

DRUGS (2)
  1. FENTANYL-100 [Suspect]
     Indication: VASCULAR OPERATION
     Dosage: 50MCG OTHER IV
     Route: 042
     Dates: start: 20090223, end: 20090223
  2. MIDAZOLAM HCL [Suspect]
     Indication: VASCULAR OPERATION
     Dosage: 1 MG OTHER IV
     Route: 042
     Dates: start: 20090223, end: 20090223

REACTIONS (2)
  - RESPIRATORY DEPRESSION [None]
  - SEDATION [None]
